FAERS Safety Report 6597835-6 (Version None)
Quarter: 2010Q1

REPORT INFORMATION
  Report Type: 
  Country: None (occurrence: None)
  Receive Date: 20100216
  Receipt Date: 20100203
  Transmission Date: 20100710
  Serious: Yes (Death, Hospitalization)
  Sender: FDA-Public Use
  Company Number: 2010AL000827

PATIENT
  Age: 92 Year
  Sex: Female

DRUGS (5)
  1. METFORMIN HYDROCHLORIDE [Suspect]
     Indication: DIABETES MELLITUS
     Dosage: 1.5 GM;QD;PO
     Route: 048
     Dates: start: 20060101, end: 20100104
  2. SIMVASTATIN [Concomitant]
  3. MINDIAB [Concomitant]
  4. MONOKET [Concomitant]
  5. TROMBYL [Concomitant]

REACTIONS (3)
  - DISORIENTATION [None]
  - GENERAL PHYSICAL CONDITION ABNORMAL [None]
  - LACTIC ACIDOSIS [None]
